FAERS Safety Report 8523786-3 (Version None)
Quarter: 2012Q3

REPORT INFORMATION
  Report Type: 
  Country: None (occurrence: None)
  Receive Date: 20120720
  Receipt Date: 20120712
  Transmission Date: 20120928
  Serious: Yes (Hospitalization)
  Sender: FDA-Public Use
  Company Number: ES-GENZYME-THYM-1003337

PATIENT
  Age: 16 Year
  Sex: Female

DRUGS (1)
  1. THYMOGLOBULIN [Suspect]
     Indication: IMMUNOSUPPRESSION
     Dosage: UNK
     Route: 042
     Dates: start: 20120420, end: 20120422

REACTIONS (3)
  - ATRIAL FLUTTER [None]
  - RASH [None]
  - PYREXIA [None]
